FAERS Safety Report 7042695-2 (Version None)
Quarter: 2010Q4

REPORT INFORMATION
  Report Type: 
  Country: None (occurrence: None)
  Receive Date: 20101013
  Receipt Date: 20100514
  Transmission Date: 20110411
  Serious: No
  Sender: FDA-Public Use
  Company Number: US-ASTRAZENECA-2010SE22346

PATIENT
  Age: 75 Year
  Sex: Female
  Weight: 65.8 kg

DRUGS (1)
  1. SYMBICORT [Suspect]
     Indication: CHRONIC OBSTRUCTIVE PULMONARY DISEASE
     Dosage: BID, TOTAL DAILY DOSAGE 320 MCG
     Route: 055
     Dates: start: 20100101

REACTIONS (1)
  - ORAL CANDIDIASIS [None]
